FAERS Safety Report 25143432 (Version 2)
Quarter: 2025Q2

REPORT INFORMATION
  Report Type: Spontaneous
  Country: NO (occurrence: NO)
  Receive Date: 20250401
  Receipt Date: 20250530
  Transmission Date: 20250717
  Serious: Yes (Other)
  Sender: MERCK SHARP & DOHME LLC
  Company Number: None

PATIENT
  Age: 20 Year
  Sex: Male

DRUGS (2)
  1. CUBICIN [Suspect]
     Active Substance: DAPTOMYCIN
     Indication: Infection
     Dosage: DOSE DESCRIPTION : 500 MILLIGRAM, QD, 500 MG X 1?DAILY DOSE : 500 MILLIGRAM?CONCENTRATION: 500 MI...
     Route: 042
     Dates: start: 2017, end: 2017
  2. PENICILLIN G [Suspect]
     Active Substance: PENICILLIN G
     Indication: Infection
     Dosage: DOSAGE: 5 10^6 IU DOSE DESCRIPTION : 5 MILLION INTERNATIONAL UNIT (10^6 IU), Q6H, POWDER FOR SOLU...
     Route: 042
     Dates: start: 20161214, end: 20170106

REACTIONS (5)
  - Myelosuppression [Recovered/Resolved]
  - Blood pressure decreased [Recovered/Resolved]
  - Syncope [Recovered/Resolved]
  - Rash [Recovered/Resolved]
  - Pruritus [Recovered/Resolved]

NARRATIVE: CASE EVENT DATE: 20170101
